FAERS Safety Report 11136195 (Version 1)
Quarter: 2015Q2

REPORT INFORMATION
  Report Type: Spontaneous
  Country: US (occurrence: US)
  Receive Date: 20150526
  Receipt Date: 20150526
  Transmission Date: 20150821
  Serious: Yes (Other)
  Sender: FDA-Public Use
  Company Number: US-MALLINCKRODT-T201501670

PATIENT
  Age: 49 Year
  Sex: Female
  Weight: 91 kg

DRUGS (11)
  1. H.P. ACTHAR [Suspect]
     Active Substance: CORTICOTROPIN
     Indication: RHEUMATOID ARTHRITIS
     Dosage: 40 UNITS, TWICE WKLY
     Route: 030
     Dates: start: 201408
  2. LOSARTAN [Concomitant]
     Active Substance: LOSARTAN
     Dosage: 50 MG
  3. FOLIC ACID. [Concomitant]
     Active Substance: FOLIC ACID
  4. HYDROCHLOROTHIAZIDE. [Concomitant]
     Active Substance: HYDROCHLOROTHIAZIDE
     Dosage: 25 MG
  5. H.P. ACTHAR [Suspect]
     Active Substance: CORTICOTROPIN
     Dosage: 80 UNITS, TWICE WKLY
     Route: 030
     Dates: start: 201405, end: 201408
  6. HYDROCODONE [Concomitant]
     Active Substance: HYDROCODONE
  7. COPAXONE [Concomitant]
     Active Substance: GLATIRAMER ACETATE
  8. AMPYRA [Concomitant]
     Active Substance: DALFAMPRIDINE
  9. CALCIUM + VITAMIN D [Concomitant]
     Active Substance: CALCIUM\VITAMIN D
  10. MAGNESIUM [Concomitant]
     Active Substance: MAGNESIUM
  11. LEFLUNOMIDE. [Concomitant]
     Active Substance: LEFLUNOMIDE

REACTIONS (4)
  - Oesophagitis [Not Recovered/Not Resolved]
  - Ulcer [Not Recovered/Not Resolved]
  - Anaemia [Recovered/Resolved]
  - Pain [Not Recovered/Not Resolved]

NARRATIVE: CASE EVENT DATE: 201408
